FAERS Safety Report 8284343-X (Version None)
Quarter: 2012Q2

REPORT INFORMATION
  Report Type: 
  Country: None (occurrence: None)
  Receive Date: 20120413
  Receipt Date: 20120209
  Transmission Date: 20120825
  Serious: No
  Sender: FDA-Public Use
  Company Number: US-ASTRAZENECA-2012SE01342

PATIENT
  Age: 72 Year
  Sex: Female
  Weight: 65.3 kg

DRUGS (17)
  1. CIPROFLOXACIN HCL [Concomitant]
     Indication: INFECTION
  2. MUCINEX [Concomitant]
  3. VITAMIN E [Concomitant]
  4. ARICEPT [Concomitant]
     Indication: MEMORY IMPAIRMENT
  5. BYSTOLIC [Concomitant]
     Indication: TACHYCARDIA
  6. CALCIUM WITH VITAMIN D [Concomitant]
  7. NEXIUM [Suspect]
     Indication: GASTROOESOPHAGEAL REFLUX DISEASE
     Route: 048
     Dates: start: 20100430
  8. ZYRTEC [Concomitant]
     Indication: MULTIPLE ALLERGIES
  9. FLEXERIL [Concomitant]
     Indication: MUSCLE SPASMS
  10. NITROGLYCERIN [Concomitant]
     Indication: CHEST PAIN
  11. BYSTOLIC [Concomitant]
     Indication: BLOOD PRESSURE ABNORMAL
  12. ELIMITE [Concomitant]
     Indication: ACARODERMATITIS
  13. KENALOG [Concomitant]
     Indication: RASH
  14. TENS UNIT [Concomitant]
     Indication: MUSCLE ELECTROSTIMULATION THERAPY
  15. TRENTAL [Concomitant]
     Indication: CARDIOVASCULAR DISORDER
  16. LIDODERM [Concomitant]
  17. LEVOXYL [Concomitant]
     Indication: THYROID DISORDER

REACTIONS (11)
  - MEMORY IMPAIRMENT [None]
  - BLOOD PRESSURE ABNORMAL [None]
  - TYPE 2 DIABETES MELLITUS [None]
  - CHEST PAIN [None]
  - MULTIPLE ALLERGIES [None]
  - RASH [None]
  - HEART RATE INCREASED [None]
  - INFECTION [None]
  - DEMENTIA [None]
  - HYPERTENSION [None]
  - MUSCLE SPASMS [None]
